FAERS Safety Report 9226065 (Version 2)
Quarter: 2013Q2

REPORT INFORMATION
  Report Type: Spontaneous
  Country: US (occurrence: US)
  Receive Date: 20130411
  Receipt Date: 20130416
  Transmission Date: 20140414
  Serious: No
  Sender: FDA-Public Use
  Company Number: US-009507513-1304USA002923

PATIENT
  Age: 27 Year
  Sex: Female

DRUGS (1)
  1. FOLLISTIM AQ CARTRIDGE [Suspect]
     Indication: ASSISTED FERTILISATION
     Dosage: 150 IU, QD

REACTIONS (2)
  - No therapeutic response [Unknown]
  - Drug ineffective [Unknown]
